FAERS Safety Report 10157982 (Version 2)
Quarter: 2014Q3

REPORT INFORMATION
  Report Type: Spontaneous
  Country: US (occurrence: US)
  Receive Date: 20140507
  Receipt Date: 20140729
  Transmission Date: 20150326
  Serious: Yes (Hospitalization)
  Sender: FDA-Public Use
  Company Number: US-GLAXOSMITHKLINE-A1072223A

PATIENT
  Age: 31 Year
  Sex: Female

DRUGS (3)
  1. PREDNISONE. [Suspect]
     Active Substance: PREDNISONE
     Indication: PRODUCT USED FOR UNKNOWN INDICATION
     Route: 065
  2. PROVENTIL [Concomitant]
     Active Substance: ALBUTEROL
  3. FLOVENT [Suspect]
     Active Substance: FLUTICASONE PROPIONATE
     Indication: ASTHMA
     Dosage: 2PUFF TWICE PER DAY
     Route: 055
     Dates: start: 201201

REACTIONS (7)
  - Genital disorder female [Unknown]
  - Rash [Unknown]
  - Pain [Unknown]
  - Synovial cyst [Recovering/Resolving]
  - Asthma [Unknown]
  - Pruritus [Unknown]
  - Tumour excision [Unknown]

NARRATIVE: CASE EVENT DATE: 2012
